FAERS Safety Report 4790167-8 (Version None)
Quarter: 2005Q4

REPORT INFORMATION
  Report Type: 
  Country: None (occurrence: None)
  Receive Date: 20051005
  Receipt Date: 20051005
  Transmission Date: 20060501
  Serious: Yes (Hospitalization)
  Sender: FDA-Public Use
  Company Number: None

PATIENT
  Age: 68 Year
  Sex: Female
  Weight: 73 kg

DRUGS (12)
  1. HEPARIN [Suspect]
     Indication: ANTICOAGULANT THERAPY
     Dosage: 2000 UNITS X 1 (BOLUS) 800 UNITS/HOUR (DRIP)
     Route: 042
     Dates: start: 20040913
  2. ASPIRIN [Concomitant]
  3. INSULIN [Concomitant]
  4. CEFEPIME [Concomitant]
  5. METRONIDAZOLE [Concomitant]
  6. VANCOMYCIN [Concomitant]
  7. LANSOPRAZOLE [Concomitant]
  8. NOREPINEPHRINE [Concomitant]
  9. EPINEPHRINE [Concomitant]
  10. FENTANYL [Concomitant]
  11. AMIODARONE [Concomitant]
  12. VASOPRESSIN [Concomitant]

REACTIONS (3)
  - HEART RATE DECREASED [None]
  - PLATELET COUNT DECREASED [None]
  - SKIN DISCOLOURATION [None]
